FAERS Safety Report 11297838 (Version 1)
Quarter: 2015Q3

REPORT INFORMATION
  Report Type: Spontaneous
  Country: US (occurrence: US)
  Receive Date: 20150722
  Receipt Date: 20150722
  Transmission Date: 20151125
  Serious: Yes (Hospitalization)
  Sender: FDA-Public Use
  Company Number: US-ELI_LILLY_AND_COMPANY-US201005004554

PATIENT
  Age: 11 Year
  Sex: Male
  Weight: 59.86 kg

DRUGS (3)
  1. ARIMIDEX [Concomitant]
     Active Substance: ANASTROZOLE
     Dosage: 1 MG, UNK
     Dates: start: 200910
  2. HUMATROPE [Suspect]
     Active Substance: SOMATROPIN
     Dosage: 1.4 MG, DAILY (1/D)
     Dates: start: 20060413, end: 20100416
  3. HUMATROPE [Suspect]
     Active Substance: SOMATROPIN
     Dosage: 2.8 MG, EACH EVENING
     Dates: start: 20100501

REACTIONS (3)
  - Insulin-like growth factor increased [Unknown]
  - Weight increased [Unknown]
  - Epiphysiolysis [Recovered/Resolved]

NARRATIVE: CASE EVENT DATE: 20070403
